FAERS Safety Report 23299970 (Version 4)
Quarter: 2024Q1

REPORT INFORMATION
  Report Type: Spontaneous
  Country: US (occurrence: US)
  Receive Date: 20231215
  Receipt Date: 20240206
  Transmission Date: 20240410
  Serious: Yes (Other)
  Sender: FDA-Public Use
  Company Number: US-REGENERON PHARMACEUTICALS, INC.-2023-150492

PATIENT
  Sex: Female

DRUGS (1)
  1. EYLEA HD [Suspect]
     Active Substance: AFLIBERCEPT
     Indication: Neovascular age-related macular degeneration
     Dosage: 8 MG, EVERY 6 WEEKS, BOTH EYES, FORMULATION: EYLEA HD
     Dates: start: 20231201, end: 20231201

REACTIONS (4)
  - Blindness transient [Recovering/Resolving]
  - Eye inflammation [Not Recovered/Not Resolved]
  - Vitreal cells [Not Recovered/Not Resolved]
  - Anterior chamber cell [Not Recovered/Not Resolved]

NARRATIVE: CASE EVENT DATE: 20231206
